FAERS Safety Report 7740353-X (Version None)
Quarter: 2011Q3

REPORT INFORMATION
  Report Type: 
  Country: None (occurrence: None)
  Receive Date: 20110909
  Receipt Date: 20110907
  Transmission Date: 20111222
  Serious: Yes (Death, Hospitalization, Other)
  Sender: FDA-Public Use
  Company Number: JP-B.I. PHARMACEUTICALS,INC./RIDGEFIELD-2011-BP-15534NB

PATIENT
  Sex: Male
  Weight: 39 kg

DRUGS (5)
  1. CIBENOL [Concomitant]
     Indication: ATRIAL FIBRILLATION
     Dosage: 200 MG
     Route: 048
     Dates: start: 20110411, end: 20110509
  2. PRADAXA [Suspect]
     Dosage: 220 MG
     Route: 048
     Dates: start: 20110423, end: 20110509
  3. IMIDAPRIL HYDROCHLORIDE [Concomitant]
     Indication: HYPERTENSION
     Dosage: 2.5 MG
     Route: 048
     Dates: start: 20110411, end: 20110509
  4. FUROSEMIDE [Concomitant]
     Indication: CARDIAC FAILURE CHRONIC
     Dosage: 20 MG
     Route: 048
     Dates: start: 20110411, end: 20110509
  5. LANSOPRAZOLE-OD [Concomitant]
     Indication: GASTROOESOPHAGEAL REFLUX DISEASE
     Dosage: 15 MG
     Route: 048
     Dates: start: 20110411

REACTIONS (10)
  - LACERATION [None]
  - GASTRIC CANCER [None]
  - DEHYDRATION [None]
  - FALL [None]
  - DECREASED APPETITE [None]
  - RENAL FAILURE ACUTE [None]
  - EPIGASTRIC DISCOMFORT [None]
  - EPISTAXIS [None]
  - FACIAL BONES FRACTURE [None]
  - GASTRIC HAEMORRHAGE [None]
